FAERS Safety Report 12823640 (Version 1)
Quarter: 2016Q4

REPORT INFORMATION
  Report Type: Spontaneous
  Country: US (occurrence: US)
  Receive Date: 20161007
  Receipt Date: 20161007
  Transmission Date: 20170207
  Serious: Yes (Hospitalization)
  Sender: FDA-Public Use
  Company Number: US-INDIVIOR LIMITED-INDV-086745-2015

PATIENT
  Age: 43 Year
  Sex: Female

DRUGS (1)
  1. SUBOXONE [Suspect]
     Active Substance: BUPRENORPHINE HYDROCHLORIDE\NALOXONE HYDROCHLORIDE
     Indication: DRUG DEPENDENCE
     Dosage: 8 MG, BID FOR ABOUT 4 MONTHS
     Route: 060
     Dates: start: 201508, end: 20151218

REACTIONS (5)
  - Product use issue [Recovered/Resolved]
  - Intentional underdose [Recovered/Resolved]
  - Restless legs syndrome [Not Recovered/Not Resolved]
  - Drug withdrawal syndrome [Not Recovered/Not Resolved]
  - Drug detoxification [Unknown]

NARRATIVE: CASE EVENT DATE: 201508
